FAERS Safety Report 5879940-2 (Version None)
Quarter: 2008Q3

REPORT INFORMATION
  Report Type: 
  Country: None (occurrence: None)
  Receive Date: 20080912
  Receipt Date: 20080904
  Transmission Date: 20090109
  Serious: Yes (Death, Hospitalization)
  Sender: FDA-Public Use
  Company Number: PL-ROCHE-503736

PATIENT
  Sex: Female
  Weight: 117 kg

DRUGS (2)
  1. CAPECITABINE [Suspect]
     Dosage: DOSE REPORTED AS 5600MG
     Route: 048
     Dates: start: 20070518
  2. DOCETAXEL [Suspect]
     Route: 042
     Dates: start: 20070518

REACTIONS (2)
  - ABDOMINAL PAIN [None]
  - DEATH [None]
